FAERS Safety Report 4281687-3 (Version None)
Quarter: 2004Q1

REPORT INFORMATION
  Report Type: 
  Country: None (occurrence: None)
  Receive Date: 20040128
  Receipt Date: 20040113
  Transmission Date: 20041129
  Serious: No
  Sender: FDA-Public Use
  Company Number: DE-SHR-03-019240

PATIENT
  Sex: Female
  Weight: 60 kg

DRUGS (1)
  1. BETAFERON                 (INTERFERON BETA - 1B) [Suspect]
     Dosage: EVERY 2D, SUBCUTANEOUS
     Route: 058
     Dates: start: 20000601

REACTIONS (4)
  - DEPRESSED LEVEL OF CONSCIOUSNESS [None]
  - HEADACHE [None]
  - INFLUENZA LIKE ILLNESS [None]
  - SYNCOPE [None]
